FAERS Safety Report 14137621 (Version 1)
Quarter: 2017Q4

REPORT INFORMATION
  Report Type: Spontaneous
  Country: HR (occurrence: HR)
  Receive Date: 20171027
  Receipt Date: 20171027
  Transmission Date: 20180321
  Serious: Yes (Life-Threatening, Hospitalization, Other)
  Sender: FDA-Public Use
  Company Number: HR-GLENMARK PHARMACEUTICALS-2017GMK029364

PATIENT

DRUGS (1)
  1. LAMOTRIGINE. [Suspect]
     Active Substance: LAMOTRIGINE
     Indication: HEADACHE
     Dosage: UNK
     Route: 065

REACTIONS (5)
  - Staphylococcal sepsis [Recovering/Resolving]
  - Pupils unequal [Recovering/Resolving]
  - Haemothorax [Recovering/Resolving]
  - Drug reaction with eosinophilia and systemic symptoms [Not Recovered/Not Resolved]
  - Acute respiratory failure [Recovering/Resolving]
